FAERS Safety Report 10513919 (Version 2)
Quarter: 2014Q4

REPORT INFORMATION
  Report Type: Spontaneous
  Country: US (occurrence: US)
  Receive Date: 20141013
  Receipt Date: 20141222
  Transmission Date: 20150528
  Serious: No
  Sender: FDA-Public Use
  Company Number: US-PFIZER INC-2014276691

PATIENT
  Age: 57 Year
  Sex: Male

DRUGS (2)
  1. CALCIUM [Concomitant]
     Active Substance: CALCIUM
     Dosage: UNK
  2. SUTENT [Suspect]
     Active Substance: SUNITINIB MALATE
     Indication: NEUROENDOCRINE CARCINOMA METASTATIC
     Dosage: 37.5 MG(12.5 MG;25 MG), DAILY
     Route: 048
     Dates: start: 20140826

REACTIONS (2)
  - Decreased appetite [Unknown]
  - Diarrhoea [Unknown]

NARRATIVE: CASE EVENT DATE: 20141006
